FAERS Safety Report 5032654-3 (Version None)
Quarter: 2006Q2

REPORT INFORMATION
  Report Type: 
  Country: None (occurrence: None)
  Receive Date: 20060515
  Receipt Date: 20060125
  Transmission Date: 20061013
  Serious: No
  Sender: FDA-Public Use
  Company Number: S06-USA-00287-01

PATIENT
  Age: 41 Year
  Sex: Male

DRUGS (8)
  1. NAMENDA [Suspect]
     Indication: ATTENTION DEFICIT/HYPERACTIVITY DISORDER
     Dosage: 5 MG QD PO
     Route: 048
     Dates: start: 20060121, end: 20060126
  2. NAMENDA [Suspect]
     Indication: SOCIAL PHOBIA
     Dosage: 5 MG QD PO
     Route: 048
     Dates: start: 20060121, end: 20060126
  3. NAMENDA [Suspect]
     Indication: ATTENTION DEFICIT/HYPERACTIVITY DISORDER
     Dosage: 10 MG QD PO
     Route: 048
     Dates: start: 20060127
  4. NAMENDA [Suspect]
     Indication: SOCIAL PHOBIA
     Dosage: 10 MG QD PO
     Route: 048
     Dates: start: 20060127
  5. WELLBUTRIN [Concomitant]
  6. ZANTAC [Concomitant]
  7. PROSCAR [Concomitant]
  8. MINOCIN [Concomitant]

REACTIONS (3)
  - ANOREXIA [None]
  - DIARRHOEA [None]
  - INSOMNIA [None]
